FAERS Safety Report 11761458 (Version 1)
Quarter: 2015Q4

REPORT INFORMATION
  Report Type: Report from Study
  Country: BR (occurrence: BR)
  Receive Date: 20151120
  Receipt Date: 20151120
  Transmission Date: 20160304
  Serious: Yes (Hospitalization, Other)
  Sender: FDA-Public Use
  Company Number: BR-ABBVIE-15K-020-1501185-00

PATIENT
  Sex: Female
  Weight: 70 kg

DRUGS (3)
  1. ARAVA [Suspect]
     Active Substance: LEFLUNOMIDE
     Indication: ARTHRITIS
     Route: 048
     Dates: start: 2009
  2. HUMIRA [Suspect]
     Active Substance: ADALIMUMAB
     Indication: RHEUMATOID ARTHRITIS
     Route: 058
     Dates: start: 20091117
  3. ARAVA [Suspect]
     Active Substance: LEFLUNOMIDE
     Route: 048

REACTIONS (13)
  - Dysphagia [Recovered/Resolved]
  - Pollakiuria [Not Recovered/Not Resolved]
  - Immunodeficiency [Recovered/Resolved]
  - Skin discolouration [Not Recovered/Not Resolved]
  - Uterine pain [Recovered/Resolved]
  - Eye inflammation [Not Recovered/Not Resolved]
  - Feeling hot [Not Recovered/Not Resolved]
  - Spinal pain [Recovering/Resolving]
  - Insomnia [Not Recovered/Not Resolved]
  - Hypertension [Recovering/Resolving]
  - Uterine polyp [Recovered/Resolved]
  - Influenza [Recovered/Resolved]
  - Alopecia [Unknown]

NARRATIVE: CASE EVENT DATE: 2009
